FAERS Safety Report 17920379 (Version 2)
Quarter: 2021Q2

REPORT INFORMATION
  Report Type: Report from Study
  Country: CO (occurrence: CO)
  Receive Date: 20200620
  Receipt Date: 20210625
  Transmission Date: 20210717
  Serious: Yes (Hospitalization)
  Sender: FDA-Public Use
  Company Number: NVSC2020CO170229

PATIENT
  Sex: Male
  Weight: 96 kg

DRUGS (8)
  1. REVOLADE [Suspect]
     Active Substance: ELTROMBOPAG OLAMINE
     Dosage: 75 MG, QD (3 TABLETS OF 25 MG)
     Route: 048
  2. FUROSEMIDE. [Suspect]
     Active Substance: FUROSEMIDE
     Indication: PORTAL HYPERTENSION
     Dosage: 40 MG, Q24H
     Route: 048
     Dates: start: 202002
  3. PROPANOLOL [Concomitant]
     Active Substance: PROPRANOLOL HYDROCHLORIDE
     Indication: PORTAL HYPERTENSION
     Dosage: 40 MG, Q12H
     Route: 048
     Dates: start: 202002
  4. FOLIC ACID. [Concomitant]
     Active Substance: FOLIC ACID
     Indication: HEPATIC FUNCTION ABNORMAL
     Dosage: 1 MG, QD (8 MONTHS AGO)
     Route: 048
  5. REVOLADE [Suspect]
     Active Substance: ELTROMBOPAG OLAMINE
     Dosage: 25 MG, QD(TABLET)
     Route: 048
     Dates: start: 202003
  6. OMEPRAZOLE. [Concomitant]
     Active Substance: OMEPRAZOLE
     Indication: GASTRITIS
     Dosage: UNK, Q12H
     Route: 065
  7. THIAMINE. [Concomitant]
     Active Substance: THIAMINE
     Indication: HEPATIC FUNCTION ABNORMAL
     Dosage: 300 MG, QD
     Route: 048
  8. REVOLADE [Suspect]
     Active Substance: ELTROMBOPAG OLAMINE
     Indication: IMMUNE THROMBOCYTOPENIA
     Dosage: 75 MG, QD (8 MONTHS AGO)(TABLET)
     Route: 048
     Dates: end: 202003

REACTIONS (3)
  - Platelet count decreased [Unknown]
  - Hepatic artery thrombosis [Recovering/Resolving]
  - Product use in unapproved indication [Unknown]
